FAERS Safety Report 9119805 (Version 1)
Quarter: 2013Q1

REPORT INFORMATION
  Report Type: Spontaneous
  Country: US (occurrence: None)
  Receive Date: 20130221
  Receipt Date: 20130221
  Transmission Date: 20140127
  Serious: No
  Sender: FDA-Public Use
  Company Number: None

PATIENT
  Sex: 0

DRUGS (2)
  1. OXACILLIN SODIUM [Suspect]
     Dosage: INJECTABLE, INJECTION, 2 GM, ADD-VANTAGE VIAL
     Route: 050
  2. AMPICILLIN [Suspect]
     Dosage: INJECTABLE, INJECTION 2GM SINGLE USE ADD-VANTA
     Route: 050

REACTIONS (2)
  - Product container issue [None]
  - Circumstance or information capable of leading to medication error [None]
